FAERS Safety Report 8925479 (Version 1)
Quarter: 2012Q4

REPORT INFORMATION
  Report Type: Spontaneous
  Country: US (occurrence: None)
  Receive Date: 20121126
  Receipt Date: 20121126
  Transmission Date: 20130627
  Serious: Yes (Hospitalization)
  Sender: FDA-Public Use
  Company Number: None

PATIENT
  Sex: Male

DRUGS (1)
  1. LISINOPRIL [Suspect]
     Dosage: 40mg once daily po
     Route: 048

REACTIONS (3)
  - Swollen tongue [None]
  - Dysarthria [None]
  - Oropharyngeal pain [None]
